FAERS Safety Report 9066765 (Version 1)
Quarter: 2013Q1

REPORT INFORMATION
  Report Type: Spontaneous
  Country: PE (occurrence: PE)
  Receive Date: 20130214
  Receipt Date: 20130214
  Transmission Date: 20140127
  Serious: Yes (Other)
  Sender: FDA-Public Use
  Company Number: PE-GLAXOSMITHKLINE-A1011890A

PATIENT
  Age: 30 Year
  Sex: Female

DRUGS (2)
  1. WELLBUTRIN [Suspect]
     Indication: DEPRESSION
     Dosage: 300MGD PER DAY
     Route: 048
     Dates: start: 20121220, end: 20130104
  2. CABERGOLINE [Concomitant]

REACTIONS (1)
  - Vaginal haemorrhage [Recovered/Resolved]
